FAERS Safety Report 10072533 (Version 1)
Quarter: 2014Q2

REPORT INFORMATION
  Report Type: Spontaneous
  Country: US (occurrence: US)
  Receive Date: 20140411
  Receipt Date: 20140411
  Transmission Date: 20141212
  Serious: No
  Sender: FDA-Public Use
  Company Number: US-BAYER-2014-049589

PATIENT
  Age: 72 Year
  Sex: Female
  Weight: 56 kg

DRUGS (3)
  1. ALEVE CAPLET [Suspect]
     Indication: PAIN
     Route: 048
  2. ROPINIROLE [Concomitant]
  3. EXLAX NOVA [Concomitant]

REACTIONS (2)
  - Extra dose administered [None]
  - Off label use [None]
